FAERS Safety Report 7788652-X (Version None)
Quarter: 2011Q3

REPORT INFORMATION
  Report Type: 
  Country: None (occurrence: None)
  Receive Date: 20110930
  Receipt Date: 20110920
  Transmission Date: 20111222
  Serious: Yes (Hospitalization)
  Sender: FDA-Public Use
  Company Number: JP-SANOFI-AVENTIS-2011SA056493

PATIENT
  Age: 78 Year
  Sex: Male
  Weight: 47 kg

DRUGS (31)
  1. IMIDAPRIL HYDROCHLORIDE [Concomitant]
     Indication: HYPERTENSION
     Route: 048
     Dates: start: 20110531, end: 20110819
  2. ETHYL ICOSAPENTATE [Concomitant]
     Indication: HYPERLIPIDAEMIA
     Route: 048
     Dates: start: 20110531
  3. AZULENE [Concomitant]
     Indication: SKIN DISORDER
     Dates: start: 20110818
  4. ALBUMIN (HUMAN) [Concomitant]
     Indication: BLOOD ALBUMIN DECREASED
     Route: 042
     Dates: start: 20110820
  5. DOPAMINE HCL [Concomitant]
     Indication: BLOOD PRESSURE DECREASED
     Route: 042
     Dates: start: 20110821, end: 20110821
  6. GIMERACIL/OTERACIL POTASSIUM/TEGAFUR [Suspect]
     Indication: GASTRIC CANCER RECURRENT
     Route: 048
     Dates: start: 20110607, end: 20110718
  7. RISEDRONATE SODIUM [Concomitant]
     Indication: OSTEOPOROSIS PROPHYLAXIS
     Route: 048
     Dates: start: 20110531
  8. SODIUM BENZOATE AND SULFAMETHOXAZOLE AND TRIMETHOPRIM AND GUAIFENESIN [Concomitant]
     Indication: CONJUNCTIVITIS
     Dosage: IO
     Dates: start: 20110811
  9. CEFMETAZOLE SODIUM [Concomitant]
     Route: 042
     Dates: start: 20110831
  10. GIMERACIL/OTERACIL POTASSIUM/TEGAFUR [Suspect]
     Route: 048
     Dates: start: 20110725, end: 20110804
  11. GLUCONSAN K [Concomitant]
     Indication: BLOOD POTASSIUM DECREASED
     Route: 048
     Dates: start: 20110816
  12. FUROSEMIDE [Concomitant]
     Indication: OEDEMA
     Dosage: DOSE: 20-40 MG
     Route: 048
     Dates: start: 20110819
  13. AMPICILLIN SODIUM/SULBACTAM SODIUM [Concomitant]
     Dosage: VIALS
     Route: 042
     Dates: start: 20110824, end: 20110831
  14. ALL OTHER THERAPEUTIC PRODUCTS [Concomitant]
     Dosage: DOSE:12800 UNIT(S)
     Route: 041
     Dates: start: 20110826, end: 20110904
  15. ASPIRIN [Concomitant]
     Indication: ANGINA PECTORIS
     Route: 048
     Dates: start: 20110531
  16. ISOSORBIDE DINITRATE [Concomitant]
     Indication: ANGINA PECTORIS
     Dates: start: 20110531
  17. SPIRONOLACTONE [Concomitant]
     Indication: OEDEMA
     Route: 048
     Dates: start: 20110816
  18. POTASSIUM CHLORIDE [Concomitant]
     Indication: FLUID REPLACEMENT
     Dosage: DOSE: 500-1500 ML
     Route: 042
     Dates: start: 20110816
  19. OXALIPLATIN [Suspect]
     Indication: GASTRIC CANCER RECURRENT
     Route: 041
     Dates: start: 20110607, end: 20110704
  20. OXALIPLATIN [Suspect]
     Route: 041
     Dates: start: 20110725, end: 20110725
  21. MILTAX [Concomitant]
     Indication: PAIN
     Dates: start: 20110820
  22. KAYTWO [Concomitant]
     Dates: start: 20110905
  23. ATORVASTATIN CALCIUM [Concomitant]
     Indication: HYPERLIPIDAEMIA
     Route: 048
     Dates: start: 20110531
  24. ALFAROL [Concomitant]
     Indication: OSTEOPOROSIS PROPHYLAXIS
     Route: 048
     Dates: start: 20110531
  25. TAMSULOSIN HCL [Concomitant]
     Indication: BENIGN PROSTATIC HYPERPLASIA
     Route: 048
     Dates: start: 20110531
  26. AMLODIPINE BESYLATE [Concomitant]
     Indication: HYPERTENSION
     Route: 048
     Dates: start: 20110531, end: 20110819
  27. CLOSTRIDIUM BUTYRICUM [Concomitant]
     Indication: ABDOMINAL DISCOMFORT
     Route: 048
     Dates: start: 20110531
  28. MIGLITOL [Concomitant]
     Indication: DIABETES MELLITUS
     Route: 048
     Dates: start: 20110531
  29. LOXOPROFEN [Concomitant]
     Indication: PAIN
     Route: 048
     Dates: start: 20110820
  30. LANSOPRAZOLE [Concomitant]
     Indication: GASTRITIS PROPHYLAXIS
     Route: 048
     Dates: start: 20110820
  31. INTRALIPID 10% [Concomitant]
     Indication: NUTRITIONAL SUPPORT
     Route: 042
     Dates: start: 20110820, end: 20110821

REACTIONS (4)
  - PSOAS ABSCESS [None]
  - DEVICE RELATED INFECTION [None]
  - DISSEMINATED INTRAVASCULAR COAGULATION [None]
  - PLEURAL EFFUSION [None]
